FAERS Safety Report 16013094 (Version 1)
Quarter: 2019Q1

REPORT INFORMATION
  Report Type: Spontaneous
  Country: US (occurrence: US)
  Receive Date: 20190227
  Receipt Date: 20190227
  Transmission Date: 20190418
  Serious: No
  Sender: FDA-Public Use
  Company Number: US-009507513-1902USA008915

PATIENT
  Sex: Female
  Weight: 71.6 kg

DRUGS (1)
  1. PRINIVIL [Suspect]
     Active Substance: LISINOPRIL
     Dosage: 20 MILLIGRAM, BID
     Route: 048

REACTIONS (4)
  - Dizziness [Unknown]
  - Hypotension [Unknown]
  - Gait disturbance [Unknown]
  - Hypertension [Unknown]
